FAERS Safety Report 17548848 (Version 1)
Quarter: 2020Q1

REPORT INFORMATION
  Report Type: Spontaneous
  Country: HU (occurrence: HU)
  Receive Date: 20200317
  Receipt Date: 20200317
  Transmission Date: 20200409
  Serious: Yes (Other)
  Sender: FDA-Public Use
  Company Number: HU-TEVA-2020-HU-1201431

PATIENT
  Age: 37 Year
  Sex: Female

DRUGS (1)
  1. QUETIAPINE TEVA [Suspect]
     Active Substance: QUETIAPINE
     Dosage: 100 MG IN THE MORNING AND 400 MG IN THE EVENING
     Route: 048
     Dates: start: 20200108

REACTIONS (8)
  - Insomnia [Not Recovered/Not Resolved]
  - Seizure [Not Recovered/Not Resolved]
  - Suicidal ideation [Not Recovered/Not Resolved]
  - Depression [Not Recovered/Not Resolved]
  - Somnolence [Not Recovered/Not Resolved]
  - Obesity [Not Recovered/Not Resolved]
  - Intentional self-injury [Not Recovered/Not Resolved]
  - Dizziness [Not Recovered/Not Resolved]

NARRATIVE: CASE EVENT DATE: 20200108
